FAERS Safety Report 10441315 (Version 2)
Quarter: 2014Q3

REPORT INFORMATION
  Report Type: Spontaneous
  Country: US (occurrence: US)
  Receive Date: 20140909
  Receipt Date: 20140909
  Transmission Date: 20150326
  Serious: Yes (Other)
  Sender: FDA-Public Use
  Company Number: US-PFIZER INC-2014228513

PATIENT
  Age: 53 Year
  Sex: Male
  Weight: 104 kg

DRUGS (2)
  1. NIFEDIPINE. [Concomitant]
     Active Substance: NIFEDIPINE
     Dosage: UNK
  2. PREPARATION H SUPPOSITORY [Suspect]
     Active Substance: COCOA BUTTER\PHENYLEPHRINE HYDROCHLORIDE
     Indication: HAEMORRHOIDS
     Dosage: UNK
     Route: 054
     Dates: start: 2014, end: 20140812

REACTIONS (4)
  - Pain [Recovering/Resolving]
  - Rectal abscess [Recovering/Resolving]
  - Product physical issue [Recovering/Resolving]
  - Poor quality drug administered [Recovering/Resolving]

NARRATIVE: CASE EVENT DATE: 201408
